FAERS Safety Report 8797484 (Version 1)
Quarter: 2012Q4

REPORT INFORMATION
  Report Type: 
  Country: US (occurrence: US)
  Receive Date: 20120920
  Receipt Date: 20120920
  Transmission Date: 20130627
  Serious: No
  Sender: FDA-Public Use
  Company Number: US-MUTUAL PHARMACEUTICAL COMPANY, INC.-CLCY20120138

PATIENT
  Age: 82 Year
  Sex: Male

DRUGS (2)
  1. COLCRYS [Suspect]
     Indication: DRUG USE FOR UNKNOWN INDICATION
     Route: 048
     Dates: start: 20120829, end: 2012
  2. ULORIC [Concomitant]
     Indication: GOUT
     Route: 065

REACTIONS (2)
  - Cerebrovascular accident [Unknown]
  - Renal failure [Unknown]
